FAERS Safety Report 5610731-3 (Version None)
Quarter: 2008Q1

REPORT INFORMATION
  Report Type: 
  Country: None (occurrence: None)
  Receive Date: 20080201
  Receipt Date: 20080118
  Transmission Date: 20080703
  Serious: Yes (Death, Other)
  Sender: FDA-Public Use
  Company Number: PHFR2007GB03655

PATIENT
  Age: 80 Year
  Sex: Male
  Weight: 50 kg

DRUGS (3)
  1. GLEEVEC [Suspect]
     Indication: CHRONIC MYELOID LEUKAEMIA
     Dosage: 400MG / DAY
     Route: 065
     Dates: start: 20031010, end: 20071203
  2. LEVOTHYROXINE SODIUM [Concomitant]
     Indication: HYPOTHYROIDISM
     Dosage: 150MCG / DAY
     Route: 048
  3. LANSOPRAZOLE [Concomitant]
     Indication: GASTRITIS
     Dosage: 30MG / DAY
     Route: 048

REACTIONS (9)
  - ABDOMINAL DISCOMFORT [None]
  - ABDOMINAL DISTENSION [None]
  - ABDOMINAL NEOPLASM [None]
  - ASCITES [None]
  - BLOOD FOLLICLE STIMULATING HORMONE INCREASED [None]
  - CACHEXIA [None]
  - DISEASE PROGRESSION [None]
  - FATIGUE [None]
  - MUSCLE ATROPHY [None]
